FAERS Safety Report 21563505 (Version 1)
Quarter: 2022Q4

REPORT INFORMATION
  Report Type: Spontaneous
  Country: CA (occurrence: CA)
  Receive Date: 20221108
  Receipt Date: 20221108
  Transmission Date: 20230112
  Serious: Yes (Hospitalization, Other)
  Sender: FDA-Public Use
  Company Number: CA-BAXTER-2022BAX023663

PATIENT
  Age: 67 Year
  Sex: Female
  Weight: 74.1 kg

DRUGS (3)
  1. CYCLOPHOSPHAMIDE [Suspect]
     Active Substance: CYCLOPHOSPHAMIDE
     Indication: Product used for unknown indication
     Dosage: UNK
     Route: 065
  2. RUXIENCE [Suspect]
     Active Substance: RITUXIMAB-PVVR
     Indication: Granulomatosis with polyangiitis
     Dosage: 2715 MG ONCE WEEKLY FOR 4 WEEKS (ONGOING)
     Route: 042
     Dates: start: 20221017
  3. PREDNISONE [Suspect]
     Active Substance: PREDNISONE
     Indication: Product used for unknown indication
     Dosage: 10 MG, ONCE A DAY (ONGOING)
     Route: 065

REACTIONS (6)
  - Adverse event [Unknown]
  - Pancytopenia [Unknown]
  - Renal impairment [Unknown]
  - White blood cell count decreased [Unknown]
  - Anaemia [Unknown]
  - Red blood cell count decreased [Unknown]

NARRATIVE: CASE EVENT DATE: 20221017
